FAERS Safety Report 5007182-1 (Version None)
Quarter: 2006Q1

REPORT INFORMATION
  Report Type: 
  Country: None (occurrence: None)
  Receive Date: 20060327
  Receipt Date: 20060126
  Transmission Date: 20060701
  Serious: Yes (Life-Threatening, Hospitalization)
  Sender: FDA-Public Use
  Company Number: 221562

PATIENT
  Age: 72 Year
  Sex: Female

DRUGS (2)
  1. AVASTIN [Suspect]
     Indication: FALLOPIAN TUBE CANCER
  2. LOW MOLECULAR WEIGHT HEPARIN (LOW MOLECULAR WEIGHT HEPARINS) [Concomitant]

REACTIONS (1)
  - BRAIN STEM HAEMORRHAGE [None]
